FAERS Safety Report 10967000 (Version 1)
Quarter: 2015Q1

REPORT INFORMATION
  Report Type: Spontaneous
  Country: US (occurrence: None)
  Receive Date: 20150327
  Receipt Date: 20150327
  Transmission Date: 20150721
  Serious: No
  Sender: FDA-Public Use
  Company Number: None

PATIENT
  Sex: Female

DRUGS (1)
  1. RIBAVIRIN. [Suspect]
     Active Substance: RIBAVIRIN

REACTIONS (11)
  - Headache [None]
  - Vomiting [None]
  - Feeling hot [None]
  - Eye disorder [None]
  - Rash pruritic [None]
  - Skin ulcer [None]
  - Nausea [None]
  - Rash generalised [None]
  - Head discomfort [None]
  - Nasal mucosal disorder [None]
  - Epistaxis [None]
